FAERS Safety Report 7203536-3 (Version None)
Quarter: 2010Q4

REPORT INFORMATION
  Report Type: 
  Country: None (occurrence: None)
  Receive Date: 20101220
  Receipt Date: 20101207
  Transmission Date: 20110411
  Serious: Yes (Other)
  Sender: FDA-Public Use
  Company Number: 2010005818

PATIENT
  Age: 63 Year
  Sex: Female
  Weight: 46.7205 kg

DRUGS (3)
  1. FENTORA [Suspect]
     Indication: BACK PAIN
     Dosage: (1600 MCG (400 MCG, 4 IN 1 D) BU) (800 MCG (200 MCG, 4 IN 1 D) BU)
     Route: 002
     Dates: start: 20070101
  2. FENTORA [Suspect]
     Indication: BACK PAIN
     Dosage: (1600 MCG (400 MCG, 4 IN 1 D) BU) (800 MCG (200 MCG, 4 IN 1 D) BU)
     Route: 002
     Dates: start: 20070101
  3. PERCOCET [Concomitant]

REACTIONS (4)
  - ARTHRALGIA [None]
  - DRUG PRESCRIBING ERROR [None]
  - MUSCULOSKELETAL PAIN [None]
  - PAIN IN EXTREMITY [None]
